FAERS Safety Report 13065015 (Version 1)
Quarter: 2016Q4

REPORT INFORMATION
  Report Type: Spontaneous
  Country: US (occurrence: US)
  Receive Date: 20161227
  Receipt Date: 20161227
  Transmission Date: 20170207
  Serious: No
  Sender: FDA-Public Use
  Company Number: US-TEVA-720877USA

PATIENT
  Sex: Female

DRUGS (2)
  1. GABITRIL [Suspect]
     Active Substance: TIAGABINE HYDROCHLORIDE
     Route: 065
  2. SABRIL [Suspect]
     Active Substance: VIGABATRIN
     Route: 048
     Dates: start: 20161026

REACTIONS (8)
  - Eye disorder [Unknown]
  - Diplopia [Unknown]
  - Gait disturbance [Unknown]
  - Fall [Unknown]
  - Visual acuity reduced [Unknown]
  - Vision blurred [Unknown]
  - Visual impairment [Unknown]
  - Thinking abnormal [Unknown]
